FAERS Safety Report 17241150 (Version 1)
Quarter: 2020Q1

REPORT INFORMATION
  Report Type: Spontaneous
  Country: US (occurrence: US)
  Receive Date: 20200107
  Receipt Date: 20200107
  Transmission Date: 20200409
  Serious: No
  Sender: FDA-Public Use
  Company Number: US-APOTEX-2019AP026643

PATIENT
  Sex: Male

DRUGS (12)
  1. MIDODRINE HYDROCHLORIDE. [Suspect]
     Active Substance: MIDODRINE HYDROCHLORIDE
     Dosage: 2.5 DF, TID .5 MG (1/2 OF A PILL)
     Route: 048
     Dates: start: 20191119
  2. AMANTADINE. [Concomitant]
     Active Substance: AMANTADINE HYDROCHLORIDE
     Indication: VIRAL INFECTION
     Dosage: 100 MG, BID
     Route: 065
     Dates: start: 2019
  3. GOCOVRI [Concomitant]
     Active Substance: AMANTADINE
     Indication: DYSKINESIA
     Dosage: 1 DF, Q.H.S. (ONE PILL EVERY NIGHT FOR THE 1ST WEEK)
     Route: 065
     Dates: end: 2019
  4. MIDODRINE HYDROCHLORIDE. [Suspect]
     Active Substance: MIDODRINE HYDROCHLORIDE
     Dosage: 1.25 DF, TID (1/4 OF A PILL)
     Route: 048
     Dates: start: 2019
  5. CLONAZEPAM. [Concomitant]
     Active Substance: CLONAZEPAM
     Indication: SLEEP DISORDER THERAPY
     Dosage: 1 DF, Q.H.S.
     Route: 065
  6. CRESTOR [Concomitant]
     Active Substance: ROSUVASTATIN CALCIUM
     Indication: PRODUCT USED FOR UNKNOWN INDICATION
     Dosage: 1 DF, B.I.WK.
     Route: 065
  7. STALEVO [Concomitant]
     Active Substance: CARBIDOPA\ENTACAPONE\LEVODOPA
     Indication: PARKINSON^S DISEASE
     Dosage: 1 DF, Q.3H. (EVERY 3 HOURS 6 TIMES A DAY STARTING AT 6:00 AM)
     Route: 048
  8. FLUDROCORTISONE [Concomitant]
     Active Substance: FLUDROCORTISONE
     Indication: BLOOD PRESSURE INCREASED
     Dosage: 2 DF, QD
     Route: 065
  9. GOCOVRI [Concomitant]
     Active Substance: AMANTADINE
     Dosage: 2 DF, Q.H.S. (TWO PILL FOR 2ND WEEK EVERY NIGHT AT BEDTIME)
     Route: 065
     Dates: end: 2019
  10. BABY ASPIRIN [Concomitant]
     Active Substance: ASPIRIN
     Indication: PRODUCT USED FOR UNKNOWN INDICATION
     Dosage: 81 MG, QD
     Route: 065
  11. MIDODRINE HYDROCHLORIDE. [Suspect]
     Active Substance: MIDODRINE HYDROCHLORIDE
     Indication: HYPOTENSION
     Dosage: 5 MG, TID
     Route: 048
     Dates: start: 20190924
  12. AZILECT [Concomitant]
     Active Substance: RASAGILINE MESYLATE
     Indication: PARKINSON^S DISEASE
     Dosage: 1 MG, QD
     Route: 065

REACTIONS (4)
  - Blood pressure increased [Unknown]
  - Incorrect dose administered [Unknown]
  - Inappropriate schedule of product administration [Unknown]
  - Blood pressure fluctuation [Not Recovered/Not Resolved]
